FAERS Safety Report 7655561-6 (Version None)
Quarter: 2011Q3

REPORT INFORMATION
  Report Type: 
  Country: None (occurrence: None)
  Receive Date: 20110804
  Receipt Date: 20110725
  Transmission Date: 20111222
  Serious: Yes (Other)
  Sender: FDA-Public Use
  Company Number: IL-JNJFOC-20110710747

PATIENT
  Age: 23 Year
  Sex: Female

DRUGS (2)
  1. STEROIDS NOS [Concomitant]
     Dosage: RECEIVED BEFORE 1ST INFUSION OF INFLIXIMAB, RECOMBINANT
     Route: 065
  2. REMICADE [Suspect]
     Indication: CROHN'S DISEASE
     Dosage: 1ST INFUSION
     Route: 042

REACTIONS (4)
  - INFUSION RELATED REACTION [None]
  - SUFFOCATION FEELING [None]
  - OXYGEN SATURATION DECREASED [None]
  - BLOOD PRESSURE DECREASED [None]
